FAERS Safety Report 5041288-6 (Version None)
Quarter: 2006Q3

REPORT INFORMATION
  Report Type: 
  Country: None (occurrence: None)
  Receive Date: 20060703
  Receipt Date: 20060428
  Transmission Date: 20061208
  Serious: Yes (Hospitalization)
  Sender: FDA-Public Use
  Company Number: BE-ROCHE-446044

PATIENT
  Age: 68 Year
  Sex: Female
  Weight: 66 kg

DRUGS (9)
  1. CAPECITABINE [Suspect]
     Indication: BREAST CANCER
     Dosage: ON DAYS ONE TO FOURTEEN EVERY THREE WEEKS
     Route: 048
     Dates: start: 20060414
  2. CAPECITABINE [Suspect]
     Dosage: DOSE REDUCED FOR CYCLE II
     Route: 048
     Dates: end: 20060602
  3. TAXOTERE [Suspect]
     Indication: BREAST CANCER
     Dosage: ON DAYS ONE AND EIGHT EVERY THREE WEEKS
     Route: 042
     Dates: start: 20060414
  4. TAXOTERE [Suspect]
     Dosage: DAYS 1 AND 8 EVERY 3 WEEKS. DOSE REDUCED FOR CYCLE II
     Route: 042
     Dates: end: 20060602
  5. TRAZOLAN [Concomitant]
  6. BETASERC [Concomitant]
  7. SERENASE [Concomitant]
  8. 1 CONCOMITANT DRUG [Concomitant]
     Dosage: REPORTED AS FLUNITROPAN
  9. POTASSIUM [Concomitant]
     Dosage: TDD = 2 * 15CC
     Dates: start: 20060415

REACTIONS (6)
  - ANOREXIA [None]
  - DIARRHOEA [None]
  - FEBRILE NEUTROPENIA [None]
  - HERPES ZOSTER [None]
  - STOMATITIS [None]
  - VOMITING [None]
